FAERS Safety Report 5928104-2 (Version None)
Quarter: 2008Q4

REPORT INFORMATION
  Report Type: 
  Country: None (occurrence: None)
  Receive Date: 20081023
  Receipt Date: 20081023
  Transmission Date: 20090506
  Serious: Yes (Hospitalization)
  Sender: FDA-Public Use
  Company Number: A0753235A

PATIENT
  Age: 30 Year
  Sex: Female

DRUGS (1)
  1. NICODERM CQ [Suspect]
     Indication: SMOKING CESSATION THERAPY
     Dosage: 14MG UNKNOWN
     Route: 062

REACTIONS (4)
  - APPLICATION SITE RASH [None]
  - MIGRAINE [None]
  - NAUSEA [None]
  - VOMITING [None]
